FAERS Safety Report 9201909 (Version 1)
Quarter: 2013Q1

REPORT INFORMATION
  Report Type: Spontaneous
  Country: US (occurrence: None)
  Receive Date: 20130327
  Receipt Date: 20130327
  Transmission Date: 20140127
  Serious: Yes (Hospitalization)
  Sender: FDA-Public Use
  Company Number: 146789

PATIENT
  Age: 30 Year
  Sex: Male

DRUGS (1)
  1. METHOTREXATE [Suspect]
     Indication: RHEUMATOID ARTHRITIS
     Dosage: QW
     Route: 058

REACTIONS (4)
  - Benign intracranial hypertension [None]
  - Psychotic disorder [None]
  - Sleep disorder [None]
  - Speech disorder [None]
